FAERS Safety Report 23975034 (Version 1)
Quarter: 2024Q2

REPORT INFORMATION
  Report Type: Spontaneous
  Country: US (occurrence: US)
  Receive Date: 20240614
  Receipt Date: 20240614
  Transmission Date: 20240716
  Serious: No
  Sender: FDA-Public Use
  Company Number: US-862174955-ML2024-03401

PATIENT
  Age: 77 Year
  Sex: Female
  Weight: 72.5 kg

DRUGS (1)
  1. TELMISARTAN [Suspect]
     Active Substance: TELMISARTAN
     Indication: Hypertension
     Dosage: FREQUENCY: ONCE AT NIGHT
     Route: 048
     Dates: start: 20240521

REACTIONS (7)
  - Paraesthesia [Recovering/Resolving]
  - Confusional state [Unknown]
  - Headache [Recovering/Resolving]
  - Dizziness [Unknown]
  - Fatigue [Unknown]
  - Joint swelling [Unknown]
  - Product packaging quantity issue [Unknown]

NARRATIVE: CASE EVENT DATE: 20240101
